FAERS Safety Report 8217444-2 (Version None)
Quarter: 2012Q1

REPORT INFORMATION
  Report Type: 
  Country: None (occurrence: None)
  Receive Date: 20120314
  Receipt Date: 20120301
  Transmission Date: 20120608
  Serious: Yes (Death, Other)
  Sender: FDA-Public Use
  Company Number: TPA2012A01181

PATIENT
  Age: 55 Year
  Sex: Male

DRUGS (1)
  1. ACTOS [Suspect]
     Dosage: 30 MG
     Dates: start: 20070101

REACTIONS (2)
  - HAEMATURIA [None]
  - BLADDER NEOPLASM [None]
